FAERS Safety Report 14420895 (Version 4)
Quarter: 2021Q2

REPORT INFORMATION
  Report Type: Spontaneous
  Country: US (occurrence: US)
  Receive Date: 20180122
  Receipt Date: 20210422
  Transmission Date: 20210716
  Serious: Yes (Other)
  Sender: FDA-Public Use
  Company Number: US-ROCHE-1955297

PATIENT
  Sex: Female
  Weight: 63.11 kg

DRUGS (4)
  1. TYSABRI [Suspect]
     Active Substance: NATALIZUMAB
     Route: 065
     Dates: start: 20090708, end: 20160628
  2. RITUXAN [Suspect]
     Active Substance: RITUXIMAB
     Indication: MULTIPLE SCLEROSIS
     Route: 041
  3. TYSABRI [Suspect]
     Active Substance: NATALIZUMAB
     Indication: MULTIPLE SCLEROSIS
     Route: 065
     Dates: start: 20050127
  4. TYSABRI [Suspect]
     Active Substance: NATALIZUMAB
     Route: 065
     Dates: start: 20080116, end: 20090114

REACTIONS (8)
  - Hypoaesthesia [Unknown]
  - Electric shock [Unknown]
  - Burning sensation [Unknown]
  - Off label use [Unknown]
  - Myocardial infarction [Unknown]
  - Gastrointestinal disorder [Unknown]
  - Paraesthesia [Unknown]
  - Neuropathy peripheral [Not Recovered/Not Resolved]
